FAERS Safety Report 8661727 (Version 3)
Quarter: 2012Q4

REPORT INFORMATION
  Report Type: Report from Study
  Country: AU (occurrence: AU)
  Receive Date: 20120712
  Receipt Date: 20121005
  Transmission Date: 20130627
  Serious: Yes (Hospitalization, Disabling)
  Sender: FDA-Public Use
  Company Number: AU-CELGENEUS-008-50794-12041852

PATIENT
  Age: 42 Year
  Sex: Male
  Weight: 92 kg

DRUGS (4)
  1. VIDAZA [Suspect]
     Indication: ACUTE MYELOID LEUKEMIA
     Dosage: 164 Milligram
     Route: 058
     Dates: start: 20120314, end: 20120327
  2. VIDAZA [Suspect]
     Dosage: 164 Milligram
     Route: 058
     Dates: start: 20120416, end: 20120424
  3. VIDAZA [Suspect]
     Route: 058
     Dates: start: 20120727
  4. BLOOD [Concomitant]
     Indication: ANEMIA
     Route: 041

REACTIONS (4)
  - Epistaxis [Recovered/Resolved]
  - Anal haemorrhage [Recovered/Resolved]
  - Febrile neutropenia [Recovered/Resolved with Sequelae]
  - Haemolysis [Recovered/Resolved]
